FAERS Safety Report 11518696 (Version 3)
Quarter: 2015Q4

REPORT INFORMATION
  Report Type: Spontaneous
  Country: JP (occurrence: JP)
  Receive Date: 20150917
  Receipt Date: 20151228
  Transmission Date: 20160304
  Serious: Yes (Other)
  Sender: FDA-Public Use
  Company Number: JP-PFIZER INC-2015304360

PATIENT
  Age: 80 Year
  Sex: Female

DRUGS (13)
  1. WARFARIN [Concomitant]
     Active Substance: WARFARIN
     Dosage: 1.75 MG, 1X/DAY
     Route: 048
  2. NEXIUM [Concomitant]
     Active Substance: ESOMEPRAZOLE MAGNESIUM
     Dosage: 20 MG, 1X/DAY
     Route: 048
  3. ATORVASTATIN [Concomitant]
     Active Substance: ATORVASTATIN
     Dosage: 10 MG, 1X/DAY
     Route: 048
  4. EYECARE [Concomitant]
     Dosage: 0.4 ML, 4X/DAY
     Route: 047
  5. ATELEC [Concomitant]
     Active Substance: CILNIDIPINE
     Indication: HYPERTENSION
     Dosage: 1 DF, 1X/DAY
     Route: 048
  6. PREDNISOLONE. [Concomitant]
     Active Substance: PREDNISOLONE
     Dosage: 10 MG, 1X/DAY
     Route: 048
  7. FOSAMAC [Concomitant]
     Active Substance: ALENDRONATE SODIUM
     Dosage: 35 MG, WEEKLY
     Route: 048
  8. ARGAMATE [Concomitant]
     Active Substance: CALCIUM POLYSTYRENE SULFONATE
     Dosage: 25 G, 1X/DAY (20% JELLY)
     Route: 048
  9. EPADEL-S [Concomitant]
     Active Substance: ICOSAPENT ETHYL
     Dosage: 900 MG, 2X/DAY
     Route: 048
  10. TAKEPRON [Concomitant]
     Active Substance: LANSOPRAZOLE
     Dosage: 15 MG, 1X/DAY
     Route: 048
  11. LYRICA [Suspect]
     Active Substance: PREGABALIN
     Indication: NEURALGIA
     Dosage: 75 MG, 1X/DAY
     Route: 048
     Dates: start: 20140325, end: 20150619
  12. CELECOX [Concomitant]
     Active Substance: CELECOXIB
     Dosage: 200 MG, 2X/DAY
     Route: 048
  13. FEBURIC [Concomitant]
     Active Substance: FEBUXOSTAT
     Dosage: 5 MG, 1X/DAY
     Route: 048

REACTIONS (2)
  - Optic neuropathy [Not Recovered/Not Resolved]
  - Visual field defect [Recovering/Resolving]

NARRATIVE: CASE EVENT DATE: 20150605
